FAERS Safety Report 6848771-9 (Version None)
Quarter: 2010Q3

REPORT INFORMATION
  Report Type: 
  Country: None (occurrence: None)
  Receive Date: 20100716
  Receipt Date: 20070911
  Transmission Date: 20110219
  Serious: No
  Sender: FDA-Public Use
  Company Number: US-PFIZER INC-2007076685

PATIENT
  Sex: Male
  Weight: 136.1 kg

DRUGS (10)
  1. CHANTIX [Suspect]
     Indication: SMOKING CESSATION THERAPY
     Dates: start: 20070830, end: 20070910
  2. ALTACE [Concomitant]
  3. ACETYLSALICYLIC ACID [Concomitant]
  4. CELEBREX [Concomitant]
  5. DETROL LA [Concomitant]
  6. DEMADEX [Concomitant]
  7. TAMSULOSIN HYDROCHLORIDE [Concomitant]
  8. LIPITOR [Concomitant]
  9. NADOLOL [Concomitant]
  10. NIASPAN [Concomitant]

REACTIONS (2)
  - HYPERSOMNIA [None]
  - LETHARGY [None]
